FAERS Safety Report 11357000 (Version 1)
Quarter: 2015Q3

REPORT INFORMATION
  Report Type: Spontaneous
  Country: US (occurrence: US)
  Receive Date: 20150803
  Receipt Date: 20150803
  Transmission Date: 20151125
  Serious: Yes (Other)
  Sender: FDA-Public Use
  Company Number: US-ELI_LILLY_AND_COMPANY-US201306000929

PATIENT
  Sex: Female

DRUGS (5)
  1. ABILIFY [Concomitant]
     Active Substance: ARIPIPRAZOLE
     Dosage: 1 DF, UNKNOWN
  2. GEODON [Concomitant]
     Active Substance: ZIPRASIDONE HYDROCHLORIDE\ZIPRASIDONE MESYLATE
     Dosage: 1 DF, UNKNOWN
  3. DEPAKOTE [Concomitant]
     Active Substance: DIVALPROEX SODIUM
     Dosage: 1 DF, UNKNOWN
  4. INVEGA [Concomitant]
     Active Substance: PALIPERIDONE
     Dosage: 1 DF, UNKNOWN
  5. ZYPREXA [Suspect]
     Active Substance: OLANZAPINE
     Dosage: 1 DF, UNKNOWN

REACTIONS (5)
  - Seizure [Unknown]
  - Hypersomnia [Unknown]
  - Hypertension [Unknown]
  - Diabetes mellitus [Unknown]
  - Weight increased [Unknown]
